FAERS Safety Report 8891628 (Version 1)
Quarter: 2012Q4

REPORT INFORMATION
  Report Type: 
  Country: US (occurrence: US)
  Receive Date: 20121107
  Receipt Date: 20121107
  Transmission Date: 20130627
  Serious: No
  Sender: FDA-Public Use
  Company Number: US-ASTRAZENECA-2012SE76969

PATIENT
  Age: 65 Year
  Sex: Female

DRUGS (2)
  1. SYMBICORT PMDI [Suspect]
     Route: 055
  2. UNSPECIFIED INGREDIENT [Suspect]
     Indication: ARTHRITIS
     Route: 065

REACTIONS (1)
  - Asthma [Unknown]
